FAERS Safety Report 11695872 (Version 1)
Quarter: 2015Q4

REPORT INFORMATION
  Report Type: Spontaneous
  Country: US (occurrence: None)
  Receive Date: 20151103
  Receipt Date: 20151103
  Transmission Date: 20160304
  Serious: Yes (Disabling)
  Sender: FDA-Public Use
  Company Number: None

PATIENT
  Age: 68 Year
  Sex: Female
  Weight: 117.94 kg

DRUGS (1)
  1. TOUJEO [Suspect]
     Active Substance: INSULIN GLARGINE
     Indication: DIABETES MELLITUS
     Dosage: 1 INSULIN DOSE EACH DAY
     Route: 030
     Dates: start: 20150918, end: 20150930

REACTIONS (8)
  - Skin hypertrophy [None]
  - Dyspnoea [None]
  - Weight increased [None]
  - Pruritus [None]
  - Rash generalised [None]
  - Swelling face [None]
  - Confusional state [None]
  - Hyperhidrosis [None]

NARRATIVE: CASE EVENT DATE: 20150918
